FAERS Safety Report 10390993 (Version 1)
Quarter: 2014Q3

REPORT INFORMATION
  Report Type: Spontaneous
  Country: FR (occurrence: FR)
  Receive Date: 20140818
  Receipt Date: 20140818
  Transmission Date: 20150326
  Serious: Yes (Hospitalization, Other)
  Sender: FDA-Public Use
  Company Number: FR-PFIZER INC-2014223636

PATIENT
  Age: 66 Year
  Sex: Male

DRUGS (17)
  1. VANCOMYCIN [Suspect]
     Active Substance: VANCOMYCIN
     Dosage: 30 MG/KG, DAILY
     Route: 042
     Dates: start: 20140613, end: 20140623
  2. SALBUTAMOL [Concomitant]
     Active Substance: ALBUTEROL
     Dosage: 5 MG, 4X/DAY
  3. IPRATROPIUM [Concomitant]
     Active Substance: IPRATROPIUM
     Dosage: UNK, 4X/DAY
  4. HIDROXIZIN [Concomitant]
     Dosage: UNK
  5. VITAMIN B6 [Concomitant]
     Active Substance: PYRIDOXINE HYDROCHLORIDE
     Dosage: UNK
  6. ESOMEPRAZOLE [Concomitant]
     Active Substance: ESOMEPRAZOLE
     Dosage: 20 MG, 1X/DAY
  7. ENOXAPARINE [Concomitant]
     Active Substance: ENOXAPARIN
     Dosage: UNK
     Dates: end: 20140622
  8. PARACETAMOL [Concomitant]
     Active Substance: ACETAMINOPHEN
     Dosage: 1 G, 1X/DAY
  9. TAZOCILLINE [Suspect]
     Active Substance: PIPERACILLIN SODIUM\TAZOBACTAM SODIUM
     Dosage: 4 G, 3X/DAY
     Route: 042
     Dates: start: 20140613, end: 20140623
  10. PERIKABIVEN [Concomitant]
     Dosage: UNK
     Dates: end: 20140622
  11. SPIRONOLACTONE. [Concomitant]
     Active Substance: SPIRONOLACTONE
     Dosage: UNK
     Dates: end: 20140622
  12. DECAN [Concomitant]
     Active Substance: ZINC GLUCONATE
     Dosage: UNK
     Dates: end: 20140622
  13. VITAMIN B1 [Concomitant]
     Active Substance: THIAMINE HYDROCHLORIDE
     Dosage: UNK
  14. VITAMIN B9 [Concomitant]
     Dosage: UNK
  15. PHOSPHORUS [Concomitant]
     Active Substance: PHOSPHORUS
     Dosage: 50 GTT, UNK
  16. HEPARIN CALCIUM [Concomitant]
     Active Substance: HEPARIN CALCIUM
     Dosage: UNK
     Dates: start: 201406
  17. FUROSEMIDE. [Concomitant]
     Active Substance: FUROSEMIDE
     Dosage: 40 MG, 1X/DAY IN THE MORNING
     Dates: end: 20140622

REACTIONS (3)
  - Systemic inflammatory response syndrome [Recovered/Resolved]
  - Renal failure acute [Recovered/Resolved]
  - Tubulointerstitial nephritis [Recovered/Resolved]

NARRATIVE: CASE EVENT DATE: 20140623
